FAERS Safety Report 12912740 (Version 2)
Quarter: 2016Q4

REPORT INFORMATION
  Report Type: Spontaneous
  Country: JP (occurrence: JP)
  Receive Date: 20161104
  Receipt Date: 20161107
  Transmission Date: 20170207
  Serious: Yes (Disabling, Other)
  Sender: FDA-Public Use
  Company Number: JP-ASTRAZENECA-2016SF14827

PATIENT
  Age: 64 Year
  Sex: Male

DRUGS (6)
  1. RECOMODULIN [Concomitant]
     Active Substance: THROMBOMODULIN ALFA
     Dates: start: 20160809
  2. ZOSYN [Concomitant]
     Active Substance: PIPERACILLIN SODIUM\TAZOBACTAM SODIUM
     Indication: PNEUMONIA
     Dates: start: 20160811
  3. CEFAZOLIN SODIUM. [Concomitant]
     Active Substance: CEFAZOLIN SODIUM
     Indication: PNEUMONIA
     Dates: start: 20160808, end: 20160808
  4. VENOGLOBULIN IH [Concomitant]
     Active Substance: HUMAN IMMUNOGLOBULIN G
     Dates: start: 20160809, end: 20160811
  5. SOL-MELCORT [Concomitant]
     Active Substance: METHYLPREDNISOLONE SODIUM SUCCINATE
     Indication: LARYNGEAL OEDEMA
     Dates: start: 20160806, end: 20160808
  6. MEROPEN [Suspect]
     Active Substance: MEROPENEM
     Indication: PNEUMONIA
     Route: 041
     Dates: start: 20160809, end: 20160811

REACTIONS (3)
  - Rhabdomyolysis [Unknown]
  - Brain hypoxia [Unknown]
  - Rash [Recovered/Resolved with Sequelae]

NARRATIVE: CASE EVENT DATE: 20160810
